FAERS Safety Report 7101812-6 (Version None)
Quarter: 2010Q4

REPORT INFORMATION
  Report Type: 
  Country: None (occurrence: None)
  Receive Date: 20101115
  Receipt Date: 20101101
  Transmission Date: 20110411
  Serious: Yes (Hospitalization)
  Sender: FDA-Public Use
  Company Number: PHHY2010CN74272

PATIENT
  Age: 46 Year
  Sex: Male

DRUGS (1)
  1. VALSARTAN [Suspect]
     Dosage: 80 MG, QD

REACTIONS (7)
  - AMNESIA [None]
  - DIZZINESS [None]
  - HYPERSENSITIVITY [None]
  - PRURITUS [None]
  - RASH [None]
  - SEBORRHOEIC DERMATITIS [None]
  - VISION BLURRED [None]
